FAERS Safety Report 7521707-3 (Version None)
Quarter: 2011Q2

REPORT INFORMATION
  Report Type: 
  Country: None (occurrence: None)
  Receive Date: 20110603
  Receipt Date: 20110524
  Transmission Date: 20111010
  Serious: Yes (Other)
  Sender: FDA-Public Use
  Company Number: AU-JNJFOC-20110301112

PATIENT
  Sex: Female

DRUGS (3)
  1. STELARA [Suspect]
     Route: 058
     Dates: start: 20101125
  2. STELARA [Suspect]
     Route: 058
     Dates: start: 20100805
  3. STELARA [Suspect]
     Indication: PSORIASIS
     Route: 058
     Dates: start: 20100902

REACTIONS (2)
  - ACNE [None]
  - HYPERTHYROIDISM [None]
